FAERS Safety Report 16000644 (Version 1)
Quarter: 2019Q1

REPORT INFORMATION
  Report Type: Spontaneous
  Country: FR (occurrence: FR)
  Receive Date: 20190225
  Receipt Date: 20190225
  Transmission Date: 20190418
  Serious: Yes (Hospitalization, Other)
  Sender: FDA-Public Use
  Company Number: FR-PFIZER INC-2019076871

PATIENT
  Age: 69 Year
  Sex: Female
  Weight: 55 kg

DRUGS (2)
  1. IBRANCE [Suspect]
     Active Substance: PALBOCICLIB
     Indication: BREAST CANCER METASTATIC
     Dosage: 125 MG, 1X/DAY
     Route: 048
     Dates: start: 20181001
  2. XGEVA [Interacting]
     Active Substance: DENOSUMAB
     Indication: METASTASES TO BONE
     Dosage: 1 DF, MONTHLY
     Route: 058
     Dates: start: 20170601, end: 20190124

REACTIONS (4)
  - Drug interaction [Not Recovered/Not Resolved]
  - Mouth ulceration [Not Recovered/Not Resolved]
  - Osteonecrosis of jaw [Not Recovered/Not Resolved]
  - Neutropenia [Not Recovered/Not Resolved]

NARRATIVE: CASE EVENT DATE: 20190124
